FAERS Safety Report 19489660 (Version 1)
Quarter: 2021Q3

REPORT INFORMATION
  Report Type: Report from Study
  Country: MX (occurrence: MX)
  Receive Date: 20210704
  Receipt Date: 20210704
  Transmission Date: 20211014
  Serious: Yes (Other)
  Sender: FDA-Public Use
  Company Number: NVSC2020MX268326

PATIENT
  Age: 62 Year
  Sex: Female
  Weight: 58 kg

DRUGS (1)
  1. FEMARA [Suspect]
     Active Substance: LETROZOLE
     Indication: BREAST CANCER
     Dosage: 2.5 MG, QD (ONCE A DAY)
     Route: 048
     Dates: start: 202006

REACTIONS (9)
  - Renal pain [Unknown]
  - Discomfort [Not Recovered/Not Resolved]
  - Product use in unapproved indication [Not Recovered/Not Resolved]
  - Osteopenia [Unknown]
  - Cystitis [Unknown]
  - Hot flush [Unknown]
  - Anxiety [Unknown]
  - Deafness [Not Recovered/Not Resolved]
  - Blood cholesterol increased [Unknown]

NARRATIVE: CASE EVENT DATE: 202006
